FAERS Safety Report 4490882-X (Version None)
Quarter: 2004Q4

REPORT INFORMATION
  Report Type: 
  Country: None (occurrence: None)
  Receive Date: 20041027
  Receipt Date: 20041012
  Transmission Date: 20050328
  Serious: Yes (Other)
  Sender: FDA-Public Use
  Company Number: 2004-BP-09881RO

PATIENT
  Age: 29 Year
  Sex: Male

DRUGS (3)
  1. AZATHIOPRINE TABLETS USP,  50 MG (AZATBIOPRINE) [Suspect]
     Indication: CROHN'S DISEASE
     Dosage: 2 MG/KG/DAY (A50 MG)
     Dates: start: 20020701
  2. INFLIXIMAB (INFLIXIMAB) [Suspect]
     Indication: CROHN'S DISEASE
     Dosage: 5 MG/KG, IV
     Route: 042
     Dates: start: 20020801
  3. PREDNISOLONE [Concomitant]

REACTIONS (1)
  - PNEUMOCYSTIS CARINII INFECTION [None]
